FAERS Safety Report 8701492 (Version 2)
Quarter: 2013Q4

REPORT INFORMATION
  Report Type: Spontaneous
  Country: US (occurrence: US)
  Receive Date: 20120802
  Receipt Date: 20131107
  Transmission Date: 20140711
  Serious: Yes (Other)
  Sender: FDA-Public Use
  Company Number: US-009507513-1207USA009907

PATIENT
  Sex: 0

DRUGS (14)
  1. ZOCOR [Suspect]
     Dosage: MATERNAL DOSE
     Route: 064
  2. METOPROLOL [Suspect]
     Dosage: MATERNAL DOSE
     Route: 064
  3. HYDRALAZINE [Suspect]
     Dosage: MATERNAL DOSE
     Route: 064
  4. ASPIRIN [Suspect]
     Dosage: MATERNAL DOSE
     Route: 064
  5. CLOPIDOGREL [Suspect]
     Dosage: MATERNAL DOSE
     Route: 064
  6. HEPARIN [Suspect]
     Route: 064
  7. FERROUS SULFATE [Suspect]
     Dosage: MATERNAL DOSE
     Route: 064
  8. CARVEDILOL [Suspect]
     Dosage: MATERNAL DOSE
     Route: 064
  9. CARVEDILOL [Suspect]
     Dosage: MATERNAL DOSE
     Route: 064
  10. CARVEDILOL [Suspect]
     Dosage: MATERNAL DOSE
     Route: 064
  11. VITAMINS (UNSPECIFIED) [Suspect]
     Route: 064
  12. [COMPOSITION UNSPECIFIED] [Suspect]
     Route: 064
  13. HYDRALAZINE [Suspect]
     Dosage: MATERNAL DOSE
     Route: 064
  14. MORPHINE [Suspect]
     Route: 064

REACTIONS (3)
  - Maternal drugs affecting foetus [Unknown]
  - Premature baby [Unknown]
  - Foetal exposure during pregnancy [Unknown]
